FAERS Safety Report 23220730 (Version 4)
Quarter: 2024Q1

REPORT INFORMATION
  Report Type: Report from Study
  Country: US (occurrence: US)
  Receive Date: 20231123
  Receipt Date: 20240129
  Transmission Date: 20240410
  Serious: Yes (Other)
  Sender: FDA-Public Use
  Company Number: US-ACADIA PHARMACEUTICALS INC.-ACA-2023-TRF-004999

PATIENT
  Age: 35 Year
  Sex: Female

DRUGS (5)
  1. DAYBUE [Suspect]
     Active Substance: TROFINETIDE
     Indication: Rett syndrome
     Dosage: 40 MILLILITER, BID
     Route: 048
     Dates: start: 20231024
  2. DAYBUE [Suspect]
     Active Substance: TROFINETIDE
     Dosage: 10 MILLILITER, BID
     Route: 048
  3. DAYBUE [Suspect]
     Active Substance: TROFINETIDE
     Dosage: 40 MILLILITER, BID
     Route: 048
  4. TRAZODONE [Suspect]
     Active Substance: TRAZODONE HYDROCHLORIDE
     Indication: Somnolence
     Dosage: 25 MILLIGRAM, EVERY DAY/NIGHT BED TIME
  5. CLONAZEPAM [Suspect]
     Active Substance: CLONAZEPAM
     Dosage: 0.5 MG  BID

REACTIONS (14)
  - Choking [Not Recovered/Not Resolved]
  - Insomnia [Unknown]
  - Crying [Unknown]
  - Drug interaction [Unknown]
  - Retching [Not Recovered/Not Resolved]
  - Constipation [Not Recovered/Not Resolved]
  - Constipation [Not Recovered/Not Resolved]
  - Crying [Not Recovered/Not Resolved]
  - Product dose omission issue [Recovered/Resolved]
  - Paranasal sinus hypersecretion [Recovering/Resolving]
  - Cough [Not Recovered/Not Resolved]
  - Retching [Not Recovered/Not Resolved]
  - Underdose [Recovered/Resolved]
  - Diarrhoea [Unknown]

NARRATIVE: CASE EVENT DATE: 20231024
